FAERS Safety Report 11113946 (Version 2)
Quarter: 2015Q3

REPORT INFORMATION
  Report Type: Spontaneous
  Country: US (occurrence: US)
  Receive Date: 20150514
  Receipt Date: 20150728
  Transmission Date: 20151125
  Serious: No
  Sender: FDA-Public Use
  Company Number: US-GLAXOSMITHKLINE-US2015063350

PATIENT
  Age: 81 Year
  Sex: Female

DRUGS (1)
  1. FLONASE [Suspect]
     Active Substance: FLUTICASONE PROPIONATE
     Indication: HYPERSENSITIVITY
     Dosage: UNK
     Dates: start: 20150424

REACTIONS (4)
  - Headache [Recovered/Resolved]
  - Rhinitis [Recovered/Resolved]
  - Malaise [Unknown]
  - Drug ineffective [Unknown]
